FAERS Safety Report 8780428 (Version 1)
Quarter: 2012Q4

REPORT INFORMATION
  Report Type: Spontaneous
  Country: GB (occurrence: None)
  Receive Date: 20120830
  Receipt Date: 20120830
  Transmission Date: 20130627
  Serious: Yes (Other)
  Sender: FDA-Public Use
  Company Number: 2012AP002629

PATIENT
  Age: 53 Year
  Sex: Male

DRUGS (20)
  1. RAMIPRIL [Suspect]
     Indication: DRUG USE FOR UNKNOWN INDICATION
     Dates: start: 20120718
  2. ASPIRIN (ACETYLSALICYLIC ACID) [Concomitant]
  3. ATORVASTATIN [Concomitant]
  4. BISOPROLOL [Concomitant]
  5. CETIRIZINE [Concomitant]
  6. PERINDOPRIL [Concomitant]
  7. PROCHLORPERAZINE MALEATE [Concomitant]
  8. TERBINAFINE HYDROCHLORIDE [Concomitant]
  9. ANAFRANIL (CLOMIPRAMINE HYDROCHLORIDE) [Concomitant]
  10. ATORVASTATIN [Concomitant]
  11. EZETIMIBE [Concomitant]
  12. OMEPRAZOLE [Concomitant]
  13. PAROXETINE HYDROCHLORIDE [Concomitant]
  14. PENICILLIN (BENZYLPENICILLIN) [Concomitant]
  15. PENICILLIN [Concomitant]
  16. PERINDOPRIL [Concomitant]
  17. PRAVASTATIN [Concomitant]
  18. ROSUVASTATIN [Concomitant]
  19. SERTRALINE HYDROCHLORIDE [Concomitant]
  20. SIMVASTATIN [Concomitant]

REACTIONS (5)
  - Chest pain [None]
  - Neck pain [None]
  - Product substitution issue [None]
  - Musculoskeletal pain [None]
  - Vertigo [None]
